FAERS Safety Report 4600234-7 (Version None)
Quarter: 2005Q1

REPORT INFORMATION
  Report Type: 
  Country: None (occurrence: None)
  Receive Date: 20050127
  Receipt Date: 20041102
  Transmission Date: 20050727
  Serious: No
  Sender: FDA-Public Use
  Company Number: USA041182985

PATIENT
  Age: 57 Year
  Sex: Male
  Weight: 86 kg

DRUGS (1)
  1. STRATTERA [Suspect]
     Indication: PSYCHOMOTOR HYPERACTIVITY
     Dosage: 80 MG DAY
     Dates: start: 20041001

REACTIONS (4)
  - DRY MOUTH [None]
  - MICTURITION DISORDER [None]
  - MIDDLE INSOMNIA [None]
  - NASAL DRYNESS [None]
